FAERS Safety Report 9425066 (Version 1)
Quarter: 2013Q3

REPORT INFORMATION
  Report Type: Spontaneous
  Country: CN (occurrence: CN)
  Receive Date: 20130729
  Receipt Date: 20130729
  Transmission Date: 20140515
  Serious: Yes (Other)
  Sender: FDA-Public Use
  Company Number: CN-BRACCO-000479

PATIENT
  Age: 80 Year
  Sex: Male

DRUGS (2)
  1. IOPAMIRO [Suspect]
     Indication: ANEURYSM REPAIR
     Dosage: LESS THAN 200 ML
     Route: 013
     Dates: start: 20130417, end: 20130417
  2. ANESTHETICS, GENERAL [Concomitant]
     Dates: start: 20130417

REACTIONS (2)
  - Brain oedema [Unknown]
  - Hemiparesis [Recovered/Resolved]
